FAERS Safety Report 7780888-7 (Version None)
Quarter: 2011Q3

REPORT INFORMATION
  Report Type: 
  Country: None (occurrence: None)
  Receive Date: 20110923
  Receipt Date: 20110908
  Transmission Date: 20111222
  Serious: Yes (Other)
  Sender: FDA-Public Use
  Company Number: AUR-APL-2011-05088

PATIENT
  Age: 53 Year
  Sex: Female
  Weight: 63.5 kg

DRUGS (9)
  1. LISINOPRIL [Suspect]
     Indication: HYPERTENSION
     Dosage: (5 NGM 1 D),
     Dates: start: 20110101, end: 20110101
  2. EFFEXOR [Suspect]
     Indication: HOT FLUSH
     Route: 048
     Dates: start: 20101201, end: 20110101
  3. LYRICA [Concomitant]
  4. VITAMIN D [Concomitant]
  5. CYMBALTA [Suspect]
     Indication: HOT FLUSH
     Dosage: 120 MG (60 MG, 2 IN 1 D), 40 MG, 1 D),    (20 MG, 1 D),
     Dates: start: 20110301
  6. CYMBALTA [Suspect]
     Indication: HOT FLUSH
     Dosage: 120 MG (60 MG, 2 IN 1 D), 40 MG, 1 D),    (20 MG, 1 D),
     Dates: start: 20110101, end: 20110101
  7. CYMBALTA [Suspect]
     Indication: HOT FLUSH
     Dosage: 120 MG (60 MG, 2 IN 1 D), 40 MG, 1 D),    (20 MG, 1 D),
     Dates: start: 20110101
  8. CYMBALTA [Suspect]
     Indication: HOT FLUSH
     Dosage: 120 MG (60 MG, 2 IN 1 D), 40 MG, 1 D),    (20 MG, 1 D),
     Dates: start: 20110101, end: 20110101
  9. TAMOXIFEN CITRATE [Concomitant]

REACTIONS (5)
  - HYPERTENSION [None]
  - HYPOTENSION [None]
  - DRUG INEFFECTIVE [None]
  - HOT FLUSH [None]
  - NERVE INJURY [None]
